FAERS Safety Report 10207148 (Version 1)
Quarter: 2014Q2

REPORT INFORMATION
  Report Type: Spontaneous
  Country: FR (occurrence: FR)
  Receive Date: 20140530
  Receipt Date: 20140530
  Transmission Date: 20141212
  Serious: Yes (Life-Threatening, Hospitalization)
  Sender: FDA-Public Use
  Company Number: FR-SA-2014SA065491

PATIENT
  Age: 58 Year
  Sex: Male

DRUGS (6)
  1. LASILIX [Suspect]
     Indication: PRODUCT USED FOR UNKNOWN INDICATION
     Route: 048
     Dates: start: 20140218, end: 20140318
  2. TAZOCILLINE [Suspect]
     Indication: PRODUCT USED FOR UNKNOWN INDICATION
     Route: 065
     Dates: start: 20140227, end: 20140306
  3. AUGMENTIN [Suspect]
     Indication: PRODUCT USED FOR UNKNOWN INDICATION
     Route: 065
     Dates: start: 20140221, end: 20140227
  4. AVLOCARDYL [Suspect]
     Route: 065
     Dates: start: 20140304, end: 20140318
  5. ALDACTONE [Suspect]
     Indication: PRODUCT USED FOR UNKNOWN INDICATION
     Route: 065
     Dates: start: 20140218, end: 20140318
  6. PHOSPHONEUROS [Suspect]
     Indication: PRODUCT USED FOR UNKNOWN INDICATION
     Route: 048
     Dates: start: 20140221, end: 20140318

REACTIONS (6)
  - Toxic epidermal necrolysis [Unknown]
  - Dermatitis bullous [Unknown]
  - Purpura [Unknown]
  - Condition aggravated [Unknown]
  - Skin exfoliation [Unknown]
  - Skin lesion [Unknown]
